FAERS Safety Report 12490223 (Version 8)
Quarter: 2019Q2

REPORT INFORMATION
  Report Type: Spontaneous
  Country: US (occurrence: US)
  Receive Date: 20160622
  Receipt Date: 20190521
  Transmission Date: 20190711
  Serious: Yes (Other)
  Sender: FDA-Public Use
  Company Number: US-PFIZER INC-2016306105

PATIENT
  Age: 50 Year
  Sex: Female
  Weight: 63 kg

DRUGS (2)
  1. LYRICA [Suspect]
     Active Substance: PREGABALIN
     Indication: FIBROMYALGIA
     Dosage: 150 MG, 2X/DAY
     Route: 048
  2. LYRICA [Suspect]
     Active Substance: PREGABALIN
     Dosage: 75 MG, 3X/DAY (TAKING HALF OF DOSE BECAUSE SHE DOESN^T HAVE MANY)

REACTIONS (17)
  - Attention deficit/hyperactivity disorder [Unknown]
  - Head discomfort [Recovered/Resolved with Sequelae]
  - Intentional product misuse [Unknown]
  - Multiple fractures [Recovered/Resolved with Sequelae]
  - Anxiety [Unknown]
  - Cardiovascular disorder [Unknown]
  - Feeling abnormal [Recovered/Resolved]
  - Brain injury [Not Recovered/Not Resolved]
  - Mental impairment [Unknown]
  - Spinal fracture [Recovered/Resolved with Sequelae]
  - Memory impairment [Unknown]
  - Executive dysfunction [Unknown]
  - Cervical vertebral fracture [Recovered/Resolved with Sequelae]
  - Accident [Unknown]
  - Withdrawal syndrome [Not Recovered/Not Resolved]
  - Depression [Not Recovered/Not Resolved]
  - Intentional product use issue [Unknown]

NARRATIVE: CASE EVENT DATE: 20091030
